FAERS Safety Report 18108177 (Version 1)
Quarter: 2020Q3

REPORT INFORMATION
  Report Type: Spontaneous
  Country: US (occurrence: US)
  Receive Date: 20200803
  Receipt Date: 20200803
  Transmission Date: 20201103
  Serious: Yes (Hospitalization)
  Sender: FDA-Public Use
  Company Number: None

PATIENT
  Age: 59 Year

DRUGS (10)
  1. FORTEO [Concomitant]
     Active Substance: TERIPARATIDE
  2. FORTEO [Suspect]
     Active Substance: TERIPARATIDE
     Indication: VITAMIN D DEFICIENCY
     Route: 058
  3. CYMBALTA [Concomitant]
     Active Substance: DULOXETINE HYDROCHLORIDE
  4. VITAMIN D [Concomitant]
     Active Substance: VITAMIN D NOS
  5. TIZANIDINE. [Concomitant]
     Active Substance: TIZANIDINE
  6. FORTEO [Suspect]
     Active Substance: TERIPARATIDE
     Indication: OSTEOPOROSIS
     Route: 058
  7. MAGNESIUM [Concomitant]
     Active Substance: MAGNESIUM
  8. TRAMADOL. [Concomitant]
     Active Substance: TRAMADOL
  9. CALCIUM [Concomitant]
     Active Substance: CALCIUM
  10. MELATONIN [Concomitant]
     Active Substance: MELATONIN

REACTIONS (9)
  - Muscle spasms [None]
  - Pain [None]
  - Arthralgia [None]
  - Blood calcium increased [None]
  - Femur fracture [None]
  - Nausea [None]
  - Flatulence [None]
  - Feeling hot [None]
  - Myalgia [None]

NARRATIVE: CASE EVENT DATE: 20180101
